FAERS Safety Report 8298556-4 (Version None)
Quarter: 2012Q2

REPORT INFORMATION
  Report Type: 
  Country: None (occurrence: None)
  Receive Date: 20120419
  Receipt Date: 20110613
  Transmission Date: 20120825
  Serious: No
  Sender: FDA-Public Use
  Company Number: US-ABBOTT-11P-163-0733107-00

PATIENT
  Sex: Female
  Weight: 27.24 kg

DRUGS (4)
  1. LAMICTAL [Concomitant]
     Indication: COMPLEX PARTIAL SEIZURES
  2. LUPRON DEPOT [Suspect]
     Indication: PRECOCIOUS PUBERTY
     Dates: start: 20110101
  3. KEPPRA [Concomitant]
     Indication: COMPLEX PARTIAL SEIZURES
  4. TRILEPTAL [Concomitant]
     Indication: COMPLEX PARTIAL SEIZURES

REACTIONS (1)
  - SOMNOLENCE [None]
